FAERS Safety Report 15330146 (Version 2)
Quarter: 2018Q4

REPORT INFORMATION
  Report Type: Spontaneous
  Country: DE (occurrence: DE)
  Receive Date: 20180829
  Receipt Date: 20180904
  Transmission Date: 20190204
  Serious: Yes (Other)
  Sender: FDA-Public Use
  Company Number: DE-TEVA-2018-DE-947436

PATIENT
  Age: 71 Year
  Sex: Female

DRUGS (9)
  1. MOXONIDIN [Concomitant]
     Active Substance: MOXONIDINE
     Indication: HYPERTENSION
     Dosage: 3-4 TIMES DAILY
  2. METOPROLOL-RATIOPHARM SUCCINAT RETARDTABLETTEN [Suspect]
     Active Substance: METOPROLOL
     Indication: HYPERTENSION
     Dosage: INTAKE FOR ABOUT 20 YEARS
     Route: 048
  3. METOPROLOL-RATIOPHARM SUCCINAT RETARDTABLETTEN [Suspect]
     Active Substance: METOPROLOL
     Dosage: 47.5 MILLIGRAM DAILY;
     Route: 048
  4. NATRILIX [Concomitant]
     Active Substance: INDAPAMIDE
     Dates: start: 201703
  5. LISINOPRIL. [Concomitant]
     Active Substance: LISINOPRIL
     Dosage: 10 MILLIGRAM DAILY;
  6. METOPROLOL-RATIOPHARM SUCCINAT RETARDTABLETTEN [Suspect]
     Active Substance: METOPROLOL
     Dosage: 23.75 MILLIGRAM DAILY;
     Route: 048
     Dates: start: 2018
  7. EBRANTIL [Concomitant]
     Active Substance: URAPIDIL
  8. MARCUMAR [Concomitant]
     Active Substance: PHENPROCOUMON
     Indication: ATRIAL FIBRILLATION
  9. LISINOPRIL. [Concomitant]
     Active Substance: LISINOPRIL
     Dosage: 20 MILLIGRAM DAILY;

REACTIONS (6)
  - Intentional product use issue [Unknown]
  - Dyspnoea [Recovered/Resolved]
  - Hypertension [Recovered/Resolved]
  - Throat tightness [Recovered/Resolved]
  - Heart rate increased [Recovered/Resolved]
  - Atrial fibrillation [Recovering/Resolving]

NARRATIVE: CASE EVENT DATE: 2018
